FAERS Safety Report 20151920 (Version 2)
Quarter: 2022Q1

REPORT INFORMATION
  Report Type: Report from Study
  Country: FR (occurrence: FR)
  Receive Date: 20211206
  Receipt Date: 20220124
  Transmission Date: 20220424
  Serious: Yes (Death, Other)
  Sender: FDA-Public Use
  Company Number: FR-BRISTOL-MYERS SQUIBB COMPANY-BMS-2021-131626

PATIENT
  Age: 84 Year
  Sex: Male

DRUGS (12)
  1. NIVOLUMAB [Suspect]
     Active Substance: NIVOLUMAB
     Indication: Non-small cell lung cancer
     Dosage: 240 MILLIGRAM, Q2WK (1 INJECTION)
     Route: 042
     Dates: start: 20210401, end: 20210429
  2. TAXOL [Suspect]
     Active Substance: PACLITAXEL
     Indication: Non-small cell lung cancer
     Dosage: UNK
     Route: 065
     Dates: start: 20210603
  3. AUGMENTIN [Concomitant]
     Active Substance: AMOXICILLIN\CLAVULANATE POTASSIUM
     Indication: Product used for unknown indication
     Dosage: UNK
     Route: 065
  4. LEVOCETIRIZINE DIHYDROCHLORIDE [Concomitant]
     Active Substance: LEVOCETIRIZINE DIHYDROCHLORIDE
     Indication: Product used for unknown indication
     Dosage: UNK
     Route: 065
  5. MUCOMYST [Concomitant]
     Active Substance: ACETYLCYSTEINE
     Indication: Product used for unknown indication
     Dosage: UNK
     Route: 065
  6. BILASTINE [Concomitant]
     Active Substance: BILASTINE
     Indication: Product used for unknown indication
     Dosage: 20 UNITS NOT SPECIFIED
     Route: 065
  7. BECLOMETHASONE DIPROPIONATE [Concomitant]
     Active Substance: BECLOMETHASONE DIPROPIONATE
     Indication: Product used for unknown indication
     Dosage: 100 UNITS NOT SPECIFIED
     Route: 065
  8. DOLIPRANE [Concomitant]
     Active Substance: ACETAMINOPHEN
     Indication: Product used for unknown indication
     Dosage: 1000 UNITS NOT SPECIFIED
     Route: 065
  9. PANTOPRAZOLE [Concomitant]
     Active Substance: PANTOPRAZOLE
     Indication: Product used for unknown indication
     Dosage: 20 UNITS NOT SPECIFIED
     Route: 065
  10. BRICANYL [Concomitant]
     Active Substance: TERBUTALINE SULFATE
     Indication: Product used for unknown indication
     Dosage: 5 MG  (DOSSETTES POUR NEBULIZATION) AN AEROSOL IF NEEDED MAX 3 TIMES A DAY.
     Route: 065
  11. FOLIC ACID [Concomitant]
     Active Substance: FOLIC ACID
     Indication: Product used for unknown indication
     Dosage: 5 MILLIGRAM
     Route: 065
  12. MOVICOL [Concomitant]
     Active Substance: POLYETHYLENE GLYCOL 3350\POTASSIUM CHLORIDE\SODIUM BICARBONATE\SODIUM CHLORIDE
     Indication: Product used for unknown indication
     Dosage: LX3/DAY FOR 2 MONTH
     Route: 065

REACTIONS (4)
  - Malignant neoplasm progression [Fatal]
  - Weight decreased [Unknown]
  - Anaemia [Unknown]
  - Injury [Unknown]

NARRATIVE: CASE EVENT DATE: 20211026
